FAERS Safety Report 26196571 (Version 1)
Quarter: 2025Q4

REPORT INFORMATION
  Report Type: Spontaneous
  Country: CN (occurrence: CN)
  Receive Date: 20251224
  Receipt Date: 20251224
  Transmission Date: 20260117
  Serious: Yes (Life-Threatening)
  Sender: SHANGHAI HENGRUI PHARMACEUTICAL
  Company Number: CN-Shanghai Hengrui Pharmaceutical Co., Ltd.-2191058

PATIENT
  Age: 59 Year
  Sex: Male

DRUGS (4)
  1. SEVOFLURANE [Suspect]
     Active Substance: SEVOFLURANE
     Indication: Induction and maintenance of anaesthesia
     Dates: start: 20251010, end: 20251010
  2. MIDAZOLAM [Suspect]
     Active Substance: MIDAZOLAM
     Dates: start: 20251010, end: 20251010
  3. PROPOFOL [Concomitant]
     Active Substance: PROPOFOL
     Dates: start: 20251010, end: 20251010
  4. DEXMEDETOMIDINE HYDROCHLORIDE [Suspect]
     Active Substance: DEXMEDETOMIDINE HYDROCHLORIDE
     Dates: start: 20251010, end: 20251010

REACTIONS (1)
  - Postoperative delirium [Recovered/Resolved]

NARRATIVE: CASE EVENT DATE: 20251010
